FAERS Safety Report 15384769 (Version 1)
Quarter: 2018Q3

REPORT INFORMATION
  Report Type: Report from Study
  Country: US (occurrence: US)
  Receive Date: 20180914
  Receipt Date: 20180914
  Transmission Date: 20181010
  Serious: Yes (Other)
  Sender: FDA-Public Use
  Company Number: PHHY2018US097240

PATIENT
  Sex: Female

DRUGS (3)
  1. COSENTYX [Suspect]
     Active Substance: SECUKINUMAB
     Indication: PSORIATIC ARTHROPATHY
  2. COSENTYX [Suspect]
     Active Substance: SECUKINUMAB
     Indication: VITILIGO
  3. COSENTYX [Suspect]
     Active Substance: SECUKINUMAB
     Indication: PSORIASIS
     Dosage: 300 MG,QMO
     Route: 058

REACTIONS (13)
  - Pain [Unknown]
  - Hyperkeratosis [Unknown]
  - Peripheral swelling [Unknown]
  - Skin haemorrhage [Unknown]
  - Psoriasis [Unknown]
  - Skin disorder [Unknown]
  - Macule [Unknown]
  - Erythema [Unknown]
  - Arthropathy [Unknown]
  - Emotional distress [Unknown]
  - Arthritis [Unknown]
  - Burning sensation [Unknown]
  - Drug ineffective [Unknown]
